FAERS Safety Report 13196481 (Version 1)
Quarter: 2017Q1

REPORT INFORMATION
  Report Type: Spontaneous
  Country: DE (occurrence: DE)
  Receive Date: 20170208
  Receipt Date: 20170208
  Transmission Date: 20170428
  Serious: Yes (Death, Other)
  Sender: FDA-Public Use
  Company Number: DE-TEVA-737526ROM

PATIENT
  Sex: Male

DRUGS (3)
  1. CISPLATIN. [Concomitant]
     Active Substance: CISPLATIN
     Indication: TESTIS CANCER
  2. ETOMEDAC [Suspect]
     Active Substance: ETOPOSIDE
     Indication: TESTIS CANCER
  3. BLEOMYCIN [Concomitant]
     Active Substance: BLEOMYCIN SULFATE
     Indication: TESTIS CANCER

REACTIONS (3)
  - Tumour lysis syndrome [Fatal]
  - Extra dose administered [Unknown]
  - Haematotoxicity [Unknown]
